FAERS Safety Report 9166018 (Version 2)
Quarter: 2013Q1

REPORT INFORMATION
  Report Type: Spontaneous
  Country: US (occurrence: None)
  Receive Date: 20130301
  Receipt Date: 20130308
  Transmission Date: 20140127
  Serious: Yes (Hospitalization)
  Sender: FDA-Public Use
  Company Number: 2013-0321

PATIENT
  Age: 76 Year
  Sex: Male
  Weight: 93.9 kg

DRUGS (3)
  1. CARFILZOMIB (CARFILZOMIB)(27 MILLIGRAM(S)/SQ.METER, INJECTION FOR INFUSION)(CARFILZOMIB) [Suspect]
     Indication: PLASMA CELL MYELOMA
     Route: 042
     Dates: start: 20121129
  2. POMALIDOMIDE (POMALIDOMIDE)(POMALIDOMIDE) [Concomitant]
  3. DEXAMETHASONE (DEXAMETHASONE)(DEXAMETHASONE) [Concomitant]

REACTIONS (3)
  - Dyspnoea [None]
  - Condition aggravated [None]
  - Oedema [None]
